FAERS Safety Report 8579220-0 (Version None)
Quarter: 2012Q3

REPORT INFORMATION
  Report Type: 
  Country: None (occurrence: None)
  Receive Date: 20120726
  Receipt Date: 20120703
  Transmission Date: 20120928
  Serious: Yes (Hospitalization)
  Sender: FDA-Public Use
  Company Number: INT_00089_2012

PATIENT
  Age: 56 Year
  Sex: Male

DRUGS (3)
  1. PIPERACILLIN/TAZOBACTAM [Suspect]
     Indication: OSTEOMYELITIS BACTERIAL
     Dosage: (DF)
  2. MEROPENEM [Suspect]
     Indication: OSTEOMYELITIS BACTERIAL
     Dosage: (DF)
  3. MEROPENEM [Suspect]
     Indication: NOSOCOMIAL INFECTION
     Dosage: (DF)

REACTIONS (7)
  - TUBULOINTERSTITIAL NEPHRITIS [None]
  - RASH [None]
  - CROSS SENSITIVITY REACTION [None]
  - DIALYSIS [None]
  - RENAL FAILURE ACUTE [None]
  - PYREXIA [None]
  - NOSOCOMIAL INFECTION [None]
